FAERS Safety Report 14821197 (Version 1)
Quarter: 2018Q2

REPORT INFORMATION
  Report Type: Spontaneous
  Country: FR (occurrence: FR)
  Receive Date: 20180427
  Receipt Date: 20180427
  Transmission Date: 20180711
  Serious: Yes (Other)
  Sender: FDA-Public Use
  Company Number: FR-BAUSCH-BL-2018-011370

PATIENT
  Age: 71 Year
  Sex: Male
  Weight: 83 kg

DRUGS (6)
  1. LEVOTHYROX [Concomitant]
     Active Substance: LEVOTHYROXINE
     Indication: PRODUCT USED FOR UNKNOWN INDICATION
  2. METFORMINE [Suspect]
     Active Substance: METFORMIN HYDROCHLORIDE
     Indication: DIABETES MELLITUS
     Route: 048
     Dates: end: 20180316
  3. FLUDEX (INDAPAMIDE) [Suspect]
     Active Substance: INDAPAMIDE
     Indication: HYPERTENSION
     Dosage: FILM-COATED TABLET
     Route: 048
     Dates: end: 20180316
  4. KARDEGIC [Concomitant]
     Active Substance: ASPIRIN DL-LYSINE
     Indication: PRODUCT USED FOR UNKNOWN INDICATION
  5. PERINDOPRIL [Suspect]
     Active Substance: PERINDOPRIL
     Indication: HYPERTENSION
     Route: 048
     Dates: end: 20180316
  6. PRAVASTATIN SODIUM. [Suspect]
     Active Substance: PRAVASTATIN SODIUM
     Indication: DYSLIPIDAEMIA
     Route: 048
     Dates: end: 20180316

REACTIONS (8)
  - Platelet count increased [None]
  - Renal failure [Recovered/Resolved]
  - PO2 increased [None]
  - PCO2 decreased [None]
  - Lactic acidosis [Recovered/Resolved]
  - Hypoglycaemia [None]
  - White blood cell count increased [None]
  - Prothrombin time prolonged [None]

NARRATIVE: CASE EVENT DATE: 20180316
